FAERS Safety Report 9165985 (Version 1)
Quarter: 2013Q1

REPORT INFORMATION
  Report Type: Spontaneous
  Country: US (occurrence: US)
  Receive Date: 20130315
  Receipt Date: 20130315
  Transmission Date: 20140127
  Serious: Yes (Hospitalization)
  Sender: FDA-Public Use
  Company Number: US-GLAXOSMITHKLINE-A1015996A

PATIENT
  Age: 74 Year
  Sex: Male

DRUGS (1)
  1. AVODART [Suspect]
     Indication: PRODUCT USED FOR UNKNOWN INDICATION
     Dosage: .5MG UNKNOWN
     Dates: start: 20090116

REACTIONS (4)
  - Limb operation [Unknown]
  - Lower limb fracture [Unknown]
  - Urinary incontinence [Unknown]
  - Fall [Unknown]
